FAERS Safety Report 8152222-4 (Version None)
Quarter: 2012Q1

REPORT INFORMATION
  Report Type: 
  Country: None (occurrence: None)
  Receive Date: 20120103
  Receipt Date: 20111111
  Transmission Date: 20120608
  Serious: No
  Sender: FDA-Public Use
  Company Number: AE-2011-003374

PATIENT
  Age: 61 Year
  Sex: Female
  Weight: 73.4827 kg

DRUGS (5)
  1. PEGASYS [Concomitant]
  2. INCIVEK [Suspect]
     Dosage: (1 IN 8 HR), ORAL
     Route: 048
     Dates: start: 20111111
  3. TOPROL-XL [Concomitant]
  4. RIBAVIRIN [Concomitant]
  5. IMIPRAMINE [Concomitant]

REACTIONS (1)
  - NAUSEA [None]
